FAERS Safety Report 8979301 (Version 1)
Quarter: 2012Q4

REPORT INFORMATION
  Report Type: 
  Country: JP (occurrence: JP)
  Receive Date: 20121221
  Receipt Date: 20121221
  Transmission Date: 20130627
  Serious: Yes (Other)
  Sender: FDA-Public Use
  Company Number: JP-PFIZER INC-2012322095

PATIENT

DRUGS (2)
  1. REVATIO [Suspect]
     Indication: PULMONARY ARTERIAL HYPERTENSION
     Route: 048
  2. ENDOXAN [Suspect]
     Indication: INTERSTITIAL PNEUMONIA

REACTIONS (1)
  - Interstitial lung disease [Not Recovered/Not Resolved]
